FAERS Safety Report 15850776 (Version 1)
Quarter: 2019Q1

REPORT INFORMATION
  Report Type: Report from Study
  Country: US (occurrence: US)
  Receive Date: 20190121
  Receipt Date: 20190121
  Transmission Date: 20190417
  Serious: Yes (Hospitalization)
  Sender: FDA-Public Use
  Company Number: US-BAXTER-2019BAX001193

PATIENT
  Age: 39 Year
  Sex: Male

DRUGS (20)
  1. CYCLOPHOSPHAMIDE FOR INJECTION, USP [Suspect]
     Active Substance: CYCLOPHOSPHAMIDE
     Dosage: REGIMEN A, CYCLE 3; OVER 3 HOURS TWICE A DAY ON DAYS 1-3, THRICE IN A CYCLE
     Route: 042
  2. PEGFILGRASTIM [Suspect]
     Active Substance: PEGFILGRASTIM
     Dosage: REGIMEN A, CYCLE 3; ON DAY 4 UNTIL RECOVERY OF GRANULOCYTE COUNT
     Route: 058
  3. MESNEX [Suspect]
     Active Substance: MESNA
     Indication: ACUTE LYMPHOCYTIC LEUKAEMIA
     Dosage: REGIMEN A, CYCLE 1; DAILY OVER 24 HOURS FOR 3 DAYS ON DAYS 1-3 [THRICE IN A CYCLE]
     Route: 042
  4. INOTUZUMAB OZOGAMICIN [Suspect]
     Active Substance: INOTUZUMAB OZOGAMICIN
     Indication: ACUTE LYMPHOCYTIC LEUKAEMIA
     Dosage: (CMC-544); REGIMEN A, CYCLE 1; OVER 1 HOUR ON DAY 3.
     Route: 042
     Dates: start: 20181006
  5. INOTUZUMAB OZOGAMICIN [Suspect]
     Active Substance: INOTUZUMAB OZOGAMICIN
     Dosage: REGIMEN B, CYCLE 2; ON DAY 2 OR 3, OF CYCLES 2 AND 4.
     Route: 042
  6. RITUXIMAB. [Suspect]
     Active Substance: RITUXIMAB
     Indication: ACUTE LYMPHOCYTIC LEUKAEMIA
     Dosage: REGIMEN A, CYCLE 1; ON DAY 2 AND DAY 8, [TWICE IN A CYCLE], (CYCLES 1 AND 3 ONLY).
     Route: 042
  7. PEGFILGRASTIM [Suspect]
     Active Substance: PEGFILGRASTIM
     Dosage: REGIMEN B, CYCLE 2; ON DAY 4 UNTIL RECOVERY OF GRANULOCYTE COUNT
     Route: 058
  8. ARA-C [Suspect]
     Active Substance: CYTARABINE
     Indication: ACUTE LYMPHOCYTIC LEUKAEMIA
     Dosage: REGIMEN B, CYCLE 2; OVER 3 HOURS TWICE A DAY X 4 DOSES ON DAYS 2 AND 3
     Route: 042
  9. METHOTREXATE SODIUM. [Suspect]
     Active Substance: METHOTREXATE SODIUM
     Dosage: REGIMEN B, CYCLE 2; CONTINUOUS INFUSION OVER 22HRS ON DAY 1 [OVER 2HRS WITH 50 MG/M2 THEN CONTINUOUS
     Route: 042
  10. RITUXIMAB. [Suspect]
     Active Substance: RITUXIMAB
     Dosage: REGIMEN B, CYCLE 2; ON DAY 2 AND DAYS 8,  [TWICE IN A CYCLE], OF CYCLES 2 AND 4.
     Route: 042
  11. VINCRISTINE SULFATE. [Suspect]
     Active Substance: VINCRISTINE SULFATE
     Indication: ACUTE LYMPHOCYTIC LEUKAEMIA
     Dosage: REGIMEN A, CYCLE 1; ON DAY 1 AND DAY 8, TWICE IN A CYCLE.
     Route: 042
  12. PEGFILGRASTIM [Suspect]
     Active Substance: PEGFILGRASTIM
     Indication: ACUTE LYMPHOCYTIC LEUKAEMIA
     Dosage: OR FILGRASTIM 5-10 MCG/KG DAILY; REGIMEN A CYCLE 1; ON DAY 4 UNTIL RECOVERY OF GRANULOCYTE COUNT
     Route: 058
  13. MESNEX [Suspect]
     Active Substance: MESNA
     Dosage: REGIMEN A, CYCLE 3; DAILY OVER 24 HOURS FOR 3 DAYS ON DAYS 1-3 [THRICE IN A CYCLE]
     Route: 042
  14. CYCLOPHOSPHAMIDE FOR INJECTION, USP [Suspect]
     Active Substance: CYCLOPHOSPHAMIDE
     Indication: ACUTE LYMPHOCYTIC LEUKAEMIA
     Dosage: REGIMEN A, CYCLE 1; OVER 3 HOURS TWICE A DAY ON DAYS 1-3, THRICE IN A CYCLE
     Route: 042
  15. METHOTREXATE SODIUM. [Suspect]
     Active Substance: METHOTREXATE SODIUM
     Indication: ACUTE LYMPHOCYTIC LEUKAEMIA
     Dosage: REGIMEN B, CYCLE 2; OVER 2HRS ON DAY 1
     Route: 042
  16. DEXAMETHASONE. [Suspect]
     Active Substance: DEXAMETHASONE
     Indication: ACUTE LYMPHOCYTIC LEUKAEMIA
     Dosage: REGIMEN A, CYCLE 1; DAILY FOR 4 DAYS ON DAYS 1-4 AND FOR 4 DAYS ON DAYS 11-14 [8 TIMES IN A CYCLE]
     Route: 042
  17. RITUXIMAB. [Suspect]
     Active Substance: RITUXIMAB
     Dosage: REGIMEN A, CYCLE 3; ON DAY 2 AND 8,  [TWICE IN A CYCLE].
     Route: 042
  18. INOTUZUMAB OZOGAMICIN [Suspect]
     Active Substance: INOTUZUMAB OZOGAMICIN
     Dosage: REGIMEN A; CYCLE 3; OVER 1 HOUR ON DAY 3. MOST RECENT DOSE BEFORE THE EVENT.
     Route: 042
     Dates: start: 20181205, end: 20181205
  19. VINCRISTINE SULFATE. [Suspect]
     Active Substance: VINCRISTINE SULFATE
     Dosage: REGIMEN A, CYCLE 3; ON DAY 1 AND DAY 8, TWICE IN A CYCLE.
     Route: 042
  20. DEXAMETHASONE. [Suspect]
     Active Substance: DEXAMETHASONE
     Dosage: REGIMEN A, CYCLE 3; DAILY FOR 4 DAYS ON DAYS 1-4 AND FOR 4 DAYS ON DAYS 11-14 [8 TIMES IN A CYCLE]
     Route: 042

REACTIONS (1)
  - Pancreatitis [Recovered/Resolved]

NARRATIVE: CASE EVENT DATE: 20181209
